FAERS Safety Report 6528882-8 (Version None)
Quarter: 2010Q1

REPORT INFORMATION
  Report Type: 
  Country: None (occurrence: None)
  Receive Date: 20100106
  Receipt Date: 20091223
  Transmission Date: 20100710
  Serious: Yes (Other)
  Sender: FDA-Public Use
  Company Number: PHHY2009GB44776

PATIENT
  Sex: Male

DRUGS (4)
  1. CLOZARIL [Suspect]
     Indication: SCHIZOPHRENIA
     Dosage: UNK
     Dates: start: 20090204
  2. HYOSCINE [Concomitant]
     Dosage: 300 UG, UNK
     Route: 048
  3. PIRENZEPINE [Concomitant]
  4. AMISULPRIDE [Concomitant]

REACTIONS (5)
  - DRUG WITHDRAWAL SYNDROME [None]
  - DYSTONIA [None]
  - NEUTROPENIA [None]
  - PSYCHOTIC DISORDER [None]
  - PYREXIA [None]
